FAERS Safety Report 6575115-2 (Version None)
Quarter: 2010Q1

REPORT INFORMATION
  Report Type: 
  Country: None (occurrence: None)
  Receive Date: 20100209
  Receipt Date: 20100202
  Transmission Date: 20100710
  Serious: Yes (Other)
  Sender: FDA-Public Use
  Company Number: US-AMGEN-QUU386116

PATIENT
  Sex: Male

DRUGS (6)
  1. ENBREL [Suspect]
     Indication: PSORIASIS
  2. ZOCOR [Concomitant]
  3. ZYRTEC [Concomitant]
  4. ASPIRIN [Concomitant]
  5. VITAMINS [Concomitant]
  6. VOLTAREN [Concomitant]

REACTIONS (6)
  - AREFLEXIA [None]
  - DISORIENTATION [None]
  - HYPOREFLEXIA [None]
  - HYPOTENSION [None]
  - TRANSIENT GLOBAL AMNESIA [None]
  - VERTEBROBASILAR INSUFFICIENCY [None]
